FAERS Safety Report 5684697-4 (Version None)
Quarter: 2008Q1

REPORT INFORMATION
  Report Type: 
  Country: None (occurrence: None)
  Receive Date: 20080328
  Receipt Date: 20070709
  Transmission Date: 20080703
  Serious: No
  Sender: FDA-Public Use
  Company Number: US-BRISTOL-MYERS SQUIBB COMPANY-13839345

PATIENT
  Sex: Male

DRUGS (3)
  1. ERBITUX [Suspect]
  2. XELODA [Suspect]
  3. OXALIPLATIN [Suspect]

REACTIONS (1)
  - VISUAL ACUITY REDUCED [None]
